FAERS Safety Report 9247011 (Version 2)
Quarter: 2013Q2

REPORT INFORMATION
  Report Type: Spontaneous
  Country: US (occurrence: US)
  Receive Date: 20130423
  Receipt Date: 20130517
  Transmission Date: 20140414
  Serious: Yes (Life-Threatening)
  Sender: FDA-Public Use
  Company Number: US-009507513-1304USA012792

PATIENT
  Sex: Male

DRUGS (2)
  1. MK-0000 (265) [Suspect]
     Dosage: 100 MG, QD
     Route: 048
     Dates: start: 2012
  2. TRAJENTA [Suspect]

REACTIONS (1)
  - Pancreatic carcinoma [Unknown]
